FAERS Safety Report 6674309-5 (Version None)
Quarter: 2010Q2

REPORT INFORMATION
  Report Type: 
  Country: None (occurrence: None)
  Receive Date: 20100409
  Receipt Date: 20100331
  Transmission Date: 20101027
  Serious: Yes (Other)
  Sender: FDA-Public Use
  Company Number: FR-JNJFOC-20100305804

PATIENT
  Sex: Male

DRUGS (5)
  1. PREZISTA [Suspect]
     Indication: HIV INFECTION
     Route: 048
  2. RITONAVIR [Concomitant]
  3. EFAVIRENZ [Concomitant]
     Indication: HIV INFECTION
  4. RALTEGRAVIR [Concomitant]
     Indication: HIV INFECTION
  5. EPIVIR [Concomitant]
     Indication: HIV INFECTION

REACTIONS (1)
  - ASTHMATIC CRISIS [None]
